FAERS Safety Report 5232461-2 (Version None)
Quarter: 2007Q1

REPORT INFORMATION
  Report Type: 
  Country: None (occurrence: None)
  Receive Date: 20061204
  Receipt Date: 20061009
  Transmission Date: 20070707
  Serious: Yes (Other)
  Sender: FDA-Public Use
  Company Number: 2006-BP-11782BP

PATIENT
  Age: 87 Year
  Sex: Male

DRUGS (5)
  1. SPIRIVA [Suspect]
     Indication: CHRONIC OBSTRUCTIVE PULMONARY DISEASE
     Dosage: 18 MCG (18 MCG,1 IN 1 D),IH
     Dates: start: 20040101
  2. FLOMAX [Suspect]
     Dosage: (0.4 MG)
  3. LIPITOR [Concomitant]
  4. WATER PILL (DIURETICS) [Concomitant]
  5. POTASSIUM (POTASSIUM) [Concomitant]

REACTIONS (2)
  - ASTHENIA [None]
  - MALAISE [None]
